FAERS Safety Report 16880749 (Version 3)
Quarter: 2019Q4

REPORT INFORMATION
  Report Type: Spontaneous
  Country: US (occurrence: US)
  Receive Date: 20191003
  Receipt Date: 20191023
  Transmission Date: 20200122
  Serious: No
  Sender: FDA-Public Use
  Company Number: US-PFIZER INC-2019421645

PATIENT
  Age: 82 Year
  Sex: Female
  Weight: 55.34 kg

DRUGS (4)
  1. SKELAXIN [Suspect]
     Active Substance: METAXALONE
     Indication: OSTEOPOROSIS
  2. SKELAXIN [Suspect]
     Active Substance: METAXALONE
     Indication: FRACTURE
     Dosage: 800 MG, 3X/DAY (TAKE THREE TABLETS A DAY TWO OF THEM SHE CUT IN HALF)
     Route: 048
  3. SKELAXIN [Suspect]
     Active Substance: METAXALONE
     Indication: MUSCLE SPASMS
  4. SKELAXIN [Suspect]
     Active Substance: METAXALONE
     Indication: BACK PAIN

REACTIONS (2)
  - Body height decreased [Unknown]
  - Weight decreased [Unknown]
